FAERS Safety Report 14787379 (Version 1)
Quarter: 2018Q2

REPORT INFORMATION
  Report Type: Spontaneous
  Country: US (occurrence: US)
  Receive Date: 20180421
  Receipt Date: 20180421
  Transmission Date: 20180711
  Serious: Yes (Hospitalization)
  Sender: FDA-Public Use
  Company Number: US-SUN PHARMACEUTICAL INDUSTRIES LTD-2018US-164785

PATIENT
  Age: 2 Year
  Sex: Female

DRUGS (1)
  1. ZONISAMIDE. [Suspect]
     Active Substance: ZONISAMIDE
     Indication: SEIZURE
     Dosage: UNK, ONCE-DAILY DOSING
     Route: 065

REACTIONS (4)
  - Toxic epidermal necrolysis [Recovered/Resolved]
  - Therapeutic product cross-reactivity [Unknown]
  - Stevens-Johnson syndrome [Recovered/Resolved]
  - Transaminases increased [Recovered/Resolved]
